FAERS Safety Report 13726114 (Version 2)
Quarter: 2017Q3

REPORT INFORMATION
  Report Type: Spontaneous
  Country: RU (occurrence: RU)
  Receive Date: 20170706
  Receipt Date: 20170803
  Transmission Date: 20171127
  Serious: Yes (Other)
  Sender: FDA-Public Use
  Company Number: RU-BAYER-2017-123790

PATIENT
  Age: 32 Year
  Sex: Female

DRUGS (1)
  1. YARINA PLUS [Suspect]
     Active Substance: DROSPIRENONE\ETHINYL ESTRADIOL\LEVOMEFOLATE CALCIUM
     Dosage: UNK
     Route: 048
     Dates: end: 201609

REACTIONS (1)
  - Fibroadenoma of breast [Recovered/Resolved]

NARRATIVE: CASE EVENT DATE: 201703
